FAERS Safety Report 13269364 (Version 2)
Quarter: 2017Q1

REPORT INFORMATION
  Report Type: Report from Study
  Country: CA (occurrence: CA)
  Receive Date: 20170224
  Receipt Date: 20170324
  Transmission Date: 20170428
  Serious: Yes (Other)
  Sender: FDA-Public Use
  Company Number: CA-AMGEN-CANSL2017026931

PATIENT
  Age: 89 Year
  Sex: Female
  Weight: 49 kg

DRUGS (6)
  1. ACTONEL [Concomitant]
     Active Substance: RISEDRONATE SODIUM
  2. AMLODIPINE [Concomitant]
     Active Substance: AMLODIPINE BESYLATE
     Dosage: UNK
  3. VITAMIN D [Concomitant]
     Active Substance: CHOLECALCIFEROL
     Dosage: UNK
  4. FUROSEMIDE. [Concomitant]
     Active Substance: FUROSEMIDE
     Dosage: UNK
  5. PROLIA [Suspect]
     Active Substance: DENOSUMAB
     Indication: OSTEOPOROSIS POSTMENOPAUSAL
     Dosage: 60 MG, Q6MO
     Route: 058
     Dates: start: 20141222
  6. CAL [Concomitant]
     Dosage: UNK

REACTIONS (5)
  - Excessive cerumen production [Recovered/Resolved]
  - Sialoadenitis [Recovered/Resolved]
  - Pain in jaw [Not Recovered/Not Resolved]
  - Depressed mood [Recovering/Resolving]
  - Sialadenosis [Recovered/Resolved]

NARRATIVE: CASE EVENT DATE: 201607
